FAERS Safety Report 4393758-1 (Version None)
Quarter: 2004Q3

REPORT INFORMATION
  Report Type: 
  Country: None (occurrence: None)
  Receive Date: 20040701
  Receipt Date: 20040621
  Transmission Date: 20050211
  Serious: Yes (Death)
  Sender: FDA-Public Use
  Company Number: JP-JNJFOC-20040605073

PATIENT
  Age: 83 Year
  Sex: Male

DRUGS (9)
  1. LEVOFLOXACIN [Suspect]
     Indication: PNEUMONIA ASPIRATION
     Dosage: 500 MG, 2 IN 1 DAY, INTRAVENOUS
     Route: 042
     Dates: start: 20031024, end: 20031030
  2. RAMIPRIL [Concomitant]
  3. BELOK ZOK MITE (METOPROLOL SUCCINATE) [Concomitant]
  4. AMIODARONE HCL [Concomitant]
  5. GODAMED (ACETYLSALICYLIC ACID) [Concomitant]
  6. DEPAKENE [Concomitant]
  7. ACTRAPID (INSULIN HUMAN) [Concomitant]
  8. FUROSEMIDE [Concomitant]
  9. AUGMENTIN [Concomitant]

REACTIONS (2)
  - APALLIC SYNDROME [None]
  - DRUG RESISTANCE [None]
